FAERS Safety Report 19293127 (Version 2)
Quarter: 2021Q3

REPORT INFORMATION
  Report Type: Report from Study
  Country: PH (occurrence: PH)
  Receive Date: 20210524
  Receipt Date: 20210705
  Transmission Date: 20211014
  Serious: Yes (Other)
  Sender: FDA-Public Use
  Company Number: NVSC2021PH107153

PATIENT
  Age: 51 Year
  Sex: Male

DRUGS (1)
  1. SCAPHO [Suspect]
     Active Substance: SECUKINUMAB
     Indication: PRODUCT USED FOR UNKNOWN INDICATION
     Dosage: 150 MG, QMO
     Route: 065
     Dates: start: 202005

REACTIONS (6)
  - Back pain [Unknown]
  - Spinal fracture [Unknown]
  - Gait disturbance [Unknown]
  - Accident [Unknown]
  - Fall [Unknown]
  - Swelling [Unknown]
